FAERS Safety Report 19403950 (Version 1)
Quarter: 2021Q2

REPORT INFORMATION
  Report Type: Spontaneous
  Country: FR (occurrence: FR)
  Receive Date: 20210610
  Receipt Date: 20210610
  Transmission Date: 20210717
  Serious: Yes (Other)
  Sender: FDA-Public Use
  Company Number: FR-ASTRAZENECA-2021A492305

PATIENT
  Age: 38 Year
  Sex: Female

DRUGS (3)
  1. STALORAL [Suspect]
     Active Substance: ALLERGENIC EXTRACTS
     Indication: PRODUCT USED FOR UNKNOWN INDICATION
     Dosage: UNKNOWN
     Route: 060
  2. SYMBICORT [Suspect]
     Active Substance: BUDESONIDE\FORMOTEROL FUMARATE DIHYDRATE
     Indication: ASTHMA
     Dosage: UNKNOWN UNKNOWN
     Route: 055
  3. STALORAL [Suspect]
     Active Substance: ALLERGENIC EXTRACTS
     Indication: PRODUCT USED FOR UNKNOWN INDICATION
     Dosage: 4.0DF UNKNOWN
     Route: 060

REACTIONS (2)
  - Gestational diabetes [Recovered/Resolved]
  - Exposure during pregnancy [Recovered/Resolved]
